FAERS Safety Report 5713979-2 (Version None)
Quarter: 2008Q2

REPORT INFORMATION
  Report Type: 
  Country: None (occurrence: None)
  Receive Date: 20080423
  Receipt Date: 20080225
  Transmission Date: 20081010
  Serious: No
  Sender: FDA-Public Use
  Company Number: US-BAYER-200815420NA

PATIENT
  Age: 39 Year
  Sex: Female

DRUGS (2)
  1. MIRENA [Suspect]
     Indication: CONTRACEPTION
     Route: 015
     Dates: start: 20071106, end: 20071218
  2. MIRENA [Suspect]
     Route: 015
     Dates: start: 20071221, end: 20080124

REACTIONS (1)
  - IUCD COMPLICATION [None]
